FAERS Safety Report 20862555 (Version 5)
Quarter: 2025Q3

REPORT INFORMATION
  Report Type: Report from Study
  Country: US (occurrence: US)
  Receive Date: 20220523
  Receipt Date: 20250905
  Transmission Date: 20251021
  Serious: Yes (Hospitalization, Other)
  Sender: TAKEDA
  Company Number: US-SHIRE-US202029138

PATIENT
  Age: 60 Year
  Sex: Female

DRUGS (6)
  1. TEDUGLUTIDE [Suspect]
     Active Substance: TEDUGLUTIDE
     Indication: Short-bowel syndrome
     Dosage: 1.5 MILLIGRAM
     Dates: start: 20160428
  2. TEDUGLUTIDE [Suspect]
     Active Substance: TEDUGLUTIDE
     Dosage: 1.5 MILLIGRAM, QD
     Dates: start: 20170509, end: 20231011
  3. TEDUGLUTIDE [Suspect]
     Active Substance: TEDUGLUTIDE
     Dosage: 1.7 MILLIGRAM, QD
     Dates: start: 20170515
  4. TEDUGLUTIDE [Suspect]
     Active Substance: TEDUGLUTIDE
     Dosage: 0.15 MILLILITER, QD
  5. TEDUGLUTIDE [Suspect]
     Active Substance: TEDUGLUTIDE
     Dosage: 1.7 MILLIGRAM, QD
  6. TEDUGLUTIDE [Suspect]
     Active Substance: TEDUGLUTIDE
     Dosage: 1.8 MILLIGRAM, QD

REACTIONS (8)
  - Intestinal obstruction [Recovered/Resolved]
  - Device related bacteraemia [Recovering/Resolving]
  - Pneumonia [Recovered/Resolved]
  - Pseudomonas infection [Recovering/Resolving]
  - Flatulence [Unknown]
  - Nausea [Unknown]
  - Insurance issue [Recovered/Resolved]
  - Gastrointestinal scarring [Unknown]

NARRATIVE: CASE EVENT DATE: 20200824
